FAERS Safety Report 8433565-3 (Version None)
Quarter: 2012Q2

REPORT INFORMATION
  Report Type: 
  Country: None (occurrence: None)
  Receive Date: 20120613
  Receipt Date: 20120607
  Transmission Date: 20120825
  Serious: No
  Sender: FDA-Public Use
  Company Number: US-PFIZER INC-2012137644

PATIENT
  Sex: Female
  Weight: 67 kg

DRUGS (2)
  1. ESTRING [Suspect]
     Indication: POSTOPERATIVE CARE
     Dosage: UNK, ONCE IN THREE MONTHS
     Route: 067
  2. SYNTHROID [Concomitant]
     Indication: HYPOTHYROIDISM
     Dosage: UNK

REACTIONS (2)
  - HOT FLUSH [None]
  - HYPERHIDROSIS [None]
